FAERS Safety Report 11682310 (Version 2)
Quarter: 2015Q4

REPORT INFORMATION
  Report Type: Spontaneous
  Country: FR (occurrence: FR)
  Receive Date: 20151029
  Receipt Date: 20151112
  Transmission Date: 20160304
  Serious: Yes (Other)
  Sender: FDA-Public Use
  Company Number: FR-NOVOPROD-466898

PATIENT
  Age: 33 Year
  Sex: Female
  Weight: 95.5 kg

DRUGS (2)
  1. IRON [Concomitant]
     Active Substance: IRON
     Indication: PREGNANCY
     Dosage: UNK
     Route: 048
  2. LEVEMIR [Suspect]
     Active Substance: INSULIN DETEMIR
     Indication: GESTATIONAL DIABETES
     Dosage: UNK
     Route: 058
     Dates: end: 20151005

REACTIONS (6)
  - Urticaria [Recovered/Resolved]
  - Swelling [Unknown]
  - Injection site discolouration [Not Recovered/Not Resolved]
  - Skin mass [Recovered/Resolved]
  - Exposure during pregnancy [Recovered/Resolved]
  - Device occlusion [Unknown]

NARRATIVE: CASE EVENT DATE: 20150928
